FAERS Safety Report 7742247-2 (Version None)
Quarter: 2011Q3

REPORT INFORMATION
  Report Type: 
  Country: None (occurrence: None)
  Receive Date: 20110907
  Receipt Date: 20110907
  Transmission Date: 20111222
  Serious: Yes (Hospitalization)
  Sender: FDA-Public Use
  Company Number: None

PATIENT
  Sex: Male
  Weight: 133.8111 kg

DRUGS (19)
  1. FERROUS SULFATE TAB [Concomitant]
  2. LANTUS [Concomitant]
  3. ASPIRIN [Concomitant]
  4. FISH OIL [Concomitant]
  5. CRESTOR [Concomitant]
  6. CALCIUM/MG/ZINC [Concomitant]
  7. HUMALOG [Concomitant]
  8. NEXIUM [Concomitant]
  9. LOMOTIL [Concomitant]
  10. TORSEMIDO [Concomitant]
  11. METOPROLOL TARTRATE [Concomitant]
  12. ATIVAN [Concomitant]
  13. COMPAZINE [Concomitant]
  14. METFORMIN HCL [Concomitant]
  15. MIV [Concomitant]
  16. ASCORBIC ACID [Concomitant]
  17. PAZOPANIB [Suspect]
     Indication: RENAL CELL CARCINOMA
     Dosage: 800 MG PO DAILY
     Route: 048
     Dates: start: 20110630, end: 20110823
  18. BENICAR [Concomitant]
  19. VICODIN [Concomitant]

REACTIONS (4)
  - CONFUSIONAL STATE [None]
  - PYREXIA [None]
  - TREMOR [None]
  - CHILLS [None]
